FAERS Safety Report 5050664-7 (Version None)
Quarter: 2006Q3

REPORT INFORMATION
  Report Type: 
  Country: None (occurrence: None)
  Receive Date: 20060710
  Receipt Date: 20060626
  Transmission Date: 20061208
  Serious: Yes (Other)
  Sender: FDA-Public Use
  Company Number: MC200600428

PATIENT
  Age: 68 Year
  Sex: Male

DRUGS (1)
  1. ANGIOMAX [Suspect]
     Indication: PERCUTANEOUS CORONARY INTERVENTION
     Dosage: 60 MG, BOLUS, INTRACORONARY
     Route: 022
     Dates: start: 20060623, end: 20060623

REACTIONS (1)
  - CARDIAC ARREST [None]
